FAERS Safety Report 9643901 (Version 1)
Quarter: 2013Q4

REPORT INFORMATION
  Report Type: Spontaneous
  Country: CA (occurrence: None)
  Receive Date: 20131023
  Receipt Date: 20131023
  Transmission Date: 20140711
  Serious: Yes (Hospitalization)
  Sender: FDA-Public Use
  Company Number: 2013AP009118

PATIENT
  Age: 36 Year
  Sex: Female

DRUGS (2)
  1. VALPROIC ACID [Suspect]
  2. PHENYTOIN [Suspect]

REACTIONS (2)
  - Drug reaction with eosinophilia and systemic symptoms [None]
  - Stevens-Johnson syndrome [None]
